FAERS Safety Report 4407575-7 (Version None)
Quarter: 2004Q3

REPORT INFORMATION
  Report Type: 
  Country: None (occurrence: None)
  Receive Date: 20040721
  Receipt Date: 20040715
  Transmission Date: 20050211
  Serious: Yes (Hospitalization)
  Sender: FDA-Public Use
  Company Number: 2004CG01396

PATIENT
  Age: 73 Year
  Sex: Male

DRUGS (7)
  1. OMEPRAZOLE [Suspect]
     Dosage: 10 MG QD PO
     Route: 048
  2. ASPIRIN [Suspect]
     Indication: TRANSIENT ISCHAEMIC ATTACK
     Dosage: 75 MG QD PO
     Route: 048
  3. EXELON [Suspect]
     Indication: DEMENTIA ALZHEIMER'S TYPE
     Dosage: 6 MG QD PO
     Route: 048
  4. EBIXA [Suspect]
     Indication: DEMENTIA ALZHEIMER'S TYPE
     Dosage: 1 DF BID PO
     Route: 048
     Dates: start: 20040329, end: 20040622
  5. LOPRIL [Suspect]
     Indication: TRANSIENT ISCHAEMIC ATTACK
     Dosage: 25 MG BID PO
     Route: 048
  6. ZOPICLONE [Suspect]
     Indication: DEMENTIA ALZHEIMER'S TYPE
     Dosage: 1 DF BID PO
     Route: 048
     Dates: start: 20040329, end: 20040622
  7. GAVISCON [Suspect]

REACTIONS (5)
  - CEREBRAL ATROPHY [None]
  - CEREBRAL ISCHAEMIA [None]
  - CONVULSION [None]
  - DISORIENTATION [None]
  - FALL [None]
